FAERS Safety Report 8421554-4 (Version None)
Quarter: 2012Q2

REPORT INFORMATION
  Report Type: 
  Country: None (occurrence: None)
  Receive Date: 20120601
  Receipt Date: 20120524
  Transmission Date: 20120825
  Serious: Yes (Other)
  Sender: FDA-Public Use
  Company Number: 2012000125

PATIENT
  Age: 71 Year
  Sex: Male

DRUGS (7)
  1. DOXAZOSIN MESYLATE [Suspect]
     Indication: PRODUCT USED FOR UNKNOWN INDICATION
     Dosage: , ORAL
     Route: 048
     Dates: start: 20080101
  2. PERMIXON (SERENOA REPENS) [Suspect]
     Indication: PRODUCT USED FOR UNKNOWN INDICATION
     Dates: start: 20080101
  3. ASPIRIN [Suspect]
     Indication: PRODUCT USED FOR UNKNOWN INDICATION
     Dosage: , ORAL
     Route: 048
  4. LESCOL [Suspect]
     Indication: HYPERCHOLESTEROLAEMIA
     Dosage: 40 MG, QD, ORAL
     Route: 048
     Dates: end: 20110801
  5. HYPERIUM (RILMENIDINE PHOSPHATE) [Suspect]
     Indication: HYPERTENSION
     Dosage: 1 MG, QD, ORAL
     Route: 048
     Dates: start: 19970101
  6. ACEON [Suspect]
     Indication: HYPERTENSION
     Dosage: 2.5 MG, QD, ORAL
     Route: 048
     Dates: start: 19970101
  7. ALDACTONE [Suspect]
     Indication: HYPERTENSION
     Dosage: 37.5 MG, QD, ORAL
     Route: 048

REACTIONS (2)
  - LIVER DISORDER [None]
  - HEPATIC STEATOSIS [None]
